FAERS Safety Report 8276030-9 (Version None)
Quarter: 2012Q2

REPORT INFORMATION
  Report Type: 
  Country: None (occurrence: None)
  Receive Date: 20120412
  Receipt Date: 20120404
  Transmission Date: 20120825
  Serious: Yes (Hospitalization)
  Sender: FDA-Public Use
  Company Number: US-US-EMD SERONO, INC.-7106504

PATIENT
  Sex: Male

DRUGS (4)
  1. REBIF [Suspect]
     Indication: MULTIPLE SCLEROSIS
     Route: 058
     Dates: start: 20101228
  2. REBIF [Suspect]
     Route: 058
     Dates: start: 20111118, end: 20111124
  3. AMITRIPTYLINE HYDROCHLORIDE [Concomitant]
     Indication: PRODUCT USED FOR UNKNOWN INDICATION
  4. REBIF [Suspect]
     Dates: start: 20120101

REACTIONS (1)
  - PULMONARY MYCOSIS [None]
